FAERS Safety Report 7568638-0 (Version None)
Quarter: 2011Q2

REPORT INFORMATION
  Report Type: 
  Country: None (occurrence: None)
  Receive Date: 20110623
  Receipt Date: 20110617
  Transmission Date: 20111010
  Serious: Yes (Death, Hospitalization)
  Sender: FDA-Public Use
  Company Number: PHHY2011US54081

PATIENT
  Age: 43 Year
  Sex: Female

DRUGS (6)
  1. DIAZEPAM [Suspect]
     Dosage: UNK UKN, UNK
  2. ZOLPIDEM [Suspect]
     Dosage: UNK UKN, UNK
  3. ZOLPIDEM [Suspect]
     Dosage: 60MG
  4. ZIPRASIDONE HYDROCHLORIDE [Suspect]
     Dosage: UNK UKN, UNK
  5. ALPRAZOLAM [Suspect]
     Dosage: 2 MG, TID
  6. CITALOPRAM HYDROBROMIDE [Suspect]
     Dosage: UNK UKN, UNK

REACTIONS (14)
  - HALLUCINATION [None]
  - BLOOD PRESSURE INCREASED [None]
  - POSTURING [None]
  - ABNORMAL BEHAVIOUR [None]
  - BODY TEMPERATURE INCREASED [None]
  - HEART RATE INCREASED [None]
  - OVERDOSE [None]
  - DRUG WITHDRAWAL SYNDROME [None]
  - MENTAL STATUS CHANGES [None]
  - INTENTIONAL DRUG MISUSE [None]
  - INSOMNIA [None]
  - TREMOR [None]
  - CYANOSIS [None]
  - APNOEIC ATTACK [None]
